FAERS Safety Report 23613254 (Version 1)
Quarter: 2024Q1

REPORT INFORMATION
  Report Type: Report from Study
  Country: US (occurrence: US)
  Receive Date: 20240308
  Receipt Date: 20240308
  Transmission Date: 20240409
  Serious: Yes (Other)
  Sender: FDA-Public Use
  Company Number: US-JAZZ PHARMACEUTICALS-2023-US-022987

PATIENT
  Sex: Female

DRUGS (8)
  1. SODIUM OXYBATE [Suspect]
     Active Substance: SODIUM OXYBATE
     Indication: Narcolepsy
     Dosage: UNK
  2. SODIUM OXYBATE [Suspect]
     Active Substance: SODIUM OXYBATE
     Indication: Cataplexy
  3. SODIUM OXYBATE [Suspect]
     Active Substance: SODIUM OXYBATE
     Indication: Somnolence
  4. ASPIRIN [Concomitant]
     Active Substance: ASPIRIN
     Dosage: 0000
     Dates: start: 20170301
  5. SIMVASTATIN [Concomitant]
     Active Substance: SIMVASTATIN
     Dosage: 0000
     Dates: start: 20170301
  6. NORVASC [Concomitant]
     Active Substance: AMLODIPINE BESYLATE
     Dosage: 0000
     Dates: start: 20170301
  7. SINGULAIR [Concomitant]
     Active Substance: MONTELUKAST SODIUM
     Dosage: 0000
     Dates: start: 20190101
  8. ARMODAFINIL [Concomitant]
     Active Substance: ARMODAFINIL
     Dosage: 0000
     Dates: start: 20220101

REACTIONS (2)
  - Calciphylaxis [Unknown]
  - Product dose omission issue [Unknown]
